FAERS Safety Report 23476600 (Version 1)
Quarter: 2024Q1

REPORT INFORMATION
  Report Type: Report from Study
  Country: US (occurrence: US)
  Receive Date: 20240204
  Receipt Date: 20240204
  Transmission Date: 20240409
  Serious: No
  Sender: FDA-Public Use
  Company Number: US-EXELIXIS-CABO-23063747

PATIENT
  Sex: Female

DRUGS (12)
  1. CABOMETYX [Suspect]
     Active Substance: CABOZANTINIB S-MALATE
     Indication: Renal cell carcinoma
     Dosage: 60 MG
  2. VITAMINS [Concomitant]
     Active Substance: VITAMINS
  3. ASPIRIN [Concomitant]
     Active Substance: ASPIRIN
  4. VITAMIN D [Concomitant]
     Active Substance: VITAMIN D NOS
  5. LASIX [Concomitant]
     Active Substance: FUROSEMIDE
  6. CARVEDILOL [Concomitant]
     Active Substance: CARVEDILOL
  7. FUROSEMIDE [Concomitant]
     Active Substance: FUROSEMIDE
  8. HERBALS\TURMERIC [Concomitant]
     Active Substance: HERBALS\TURMERIC
  9. VITAMIN B12 [Concomitant]
     Active Substance: CYANOCOBALAMIN
  10. BIOTIN [Concomitant]
     Active Substance: BIOTIN
  11. OLANZAPINE [Concomitant]
     Active Substance: OLANZAPINE
  12. LEVOTHYROXINE [Concomitant]
     Active Substance: LEVOTHYROXINE\LEVOTHYROXINE SODIUM

REACTIONS (6)
  - Memory impairment [Unknown]
  - Neuralgia [Unknown]
  - Skin depigmentation [Unknown]
  - Alopecia [Unknown]
  - Diarrhoea [Unknown]
  - Taste disorder [Unknown]
